FAERS Safety Report 20021995 (Version 1)
Quarter: 2021Q4

REPORT INFORMATION
  Report Type: Spontaneous
  Country: US (occurrence: US)
  Receive Date: 20211102
  Receipt Date: 20211102
  Transmission Date: 20220303
  Serious: Yes (Other)
  Sender: FDA-Public Use
  Company Number: US-PROCTER+GAMBLE-PH21009683

PATIENT
  Age: 17 Year
  Sex: Male

DRUGS (8)
  1. DEXTROMETHORPHAN [Suspect]
     Active Substance: DEXTROMETHORPHAN
     Dosage: UNK
     Route: 048
     Dates: start: 2021
  2. ACETAMINOPHEN [Concomitant]
     Active Substance: ACETAMINOPHEN
     Dosage: UNK
  3. UNSPECIFIED INGREDIENT [Concomitant]
     Active Substance: UNSPECIFIED INGREDIENT
     Dosage: UNK
  4. CEFTRIAXONE [Concomitant]
     Active Substance: CEFTRIAXONE
     Dosage: UNK
  5. GUAIFENESIN [Concomitant]
     Active Substance: GUAIFENESIN
     Dosage: UNK
  6. ACETAMINOPHEN [Concomitant]
     Active Substance: ACETAMINOPHEN
     Dosage: UNK
  7. BISMUTH SUBSALICYLATE [Concomitant]
     Active Substance: BISMUTH SUBSALICYLATE
     Dosage: UNK
  8. 25?30 over-the-counter cough and cold medications [Concomitant]
     Dosage: UNK

REACTIONS (19)
  - Acute kidney injury [Recovering/Resolving]
  - Renal failure [Recovering/Resolving]
  - Renal tubular necrosis [Unknown]
  - Drug abuse [Unknown]
  - Intentional overdose [Unknown]
  - Abdominal pain [Unknown]
  - Blood creatinine increased [Recovered/Resolved]
  - Carbon dioxide increased [Unknown]
  - Chromaturia [Unknown]
  - Perinephritis [Unknown]
  - Blood pressure increased [Recovered/Resolved]
  - Oliguria [Unknown]
  - Acidosis [Unknown]
  - Blood creatine phosphokinase increased [Recovering/Resolving]
  - Blood urea increased [Unknown]
  - Palpatory finding abnormal [Unknown]
  - Abdominal tenderness [Unknown]
  - Renal hypertrophy [Unknown]
  - Toxicity to various agents [Unknown]

NARRATIVE: CASE EVENT DATE: 20210701
